FAERS Safety Report 5089627-4 (Version None)
Quarter: 2006Q3

REPORT INFORMATION
  Report Type: 
  Country: None (occurrence: None)
  Receive Date: 20060822
  Receipt Date: 20060807
  Transmission Date: 20061208
  Serious: Yes (Hospitalization)
  Sender: FDA-Public Use
  Company Number: US200608002127

PATIENT
  Sex: Female
  Weight: 102 kg

DRUGS (1)
  1. ZYPREXA [Suspect]
     Dates: start: 20040101

REACTIONS (14)
  - BILIARY TRACT DISORDER [None]
  - BLOOD CHOLESTEROL ABNORMAL [None]
  - BLOOD TRIGLYCERIDES INCREASED [None]
  - CHOLELITHIASIS [None]
  - DIABETES MELLITUS [None]
  - GALLBLADDER OPERATION [None]
  - HEPATITIS VIRAL [None]
  - HYPERINSULINISM [None]
  - INSULIN RESISTANCE [None]
  - KNEE OPERATION [None]
  - MUMPS [None]
  - OBESITY [None]
  - ROAD TRAFFIC ACCIDENT [None]
  - WEIGHT DECREASED [None]
